FAERS Safety Report 11115885 (Version 1)
Quarter: 2015Q2

REPORT INFORMATION
  Report Type: Spontaneous
  Country: US (occurrence: US)
  Receive Date: 20150515
  Receipt Date: 20150515
  Transmission Date: 20150821
  Serious: No
  Sender: FDA-Public Use
  Company Number: US-009507513-1504USA017845

PATIENT
  Age: 80 Year
  Sex: Male

DRUGS (8)
  1. INVANZ [Suspect]
     Active Substance: ERTAPENEM SODIUM
     Indication: ESCHERICHIA URINARY TRACT INFECTION
     Dosage: 1000 MG DAILY
     Route: 042
  2. OMEPRAZOLE. [Concomitant]
     Active Substance: OMEPRAZOLE
  3. DIVALPROEX [Concomitant]
     Active Substance: DIVALPROEX SODIUM
     Indication: BIPOLAR DISORDER
     Dosage: 750 MG, BID
  4. PREDNISOLONE. [Concomitant]
     Active Substance: PREDNISOLONE
     Indication: THROMBOCYTOPENIC PURPURA
     Dosage: 10 MG, QD
  5. ALPRAZOLAM. [Concomitant]
     Active Substance: ALPRAZOLAM
  6. DIVALPROEX [Concomitant]
     Active Substance: DIVALPROEX SODIUM
     Dosage: 500 MG, BID
  7. HYDROMORPHONE [Concomitant]
     Active Substance: HYDROMORPHONE
  8. BENZONATATE. [Concomitant]
     Active Substance: BENZONATATE

REACTIONS (5)
  - Mania [Recovered/Resolved]
  - Insomnia [Unknown]
  - Pressure of speech [Unknown]
  - Aggression [Unknown]
  - Irritability [Unknown]
